FAERS Safety Report 16442214 (Version 1)
Quarter: 2019Q2

REPORT INFORMATION
  Report Type: Report from Study
  Country: None (occurrence: US)
  Receive Date: 20190617
  Receipt Date: 20190617
  Transmission Date: 20190711
  Serious: No
  Sender: FDA-Public Use
  Company Number: US-US WORLDMEDS, LLC-USW201902-000273

PATIENT
  Age: 79 Year
  Sex: Female

DRUGS (30)
  1. MUCINEX [Concomitant]
     Active Substance: GUAIFENESIN
  2. RASAGILINE MESYLATE. [Concomitant]
     Active Substance: RASAGILINE MESYLATE
  3. APOKYN [Suspect]
     Active Substance: APOMORPHINE HYDROCHLORIDE
  4. LOSARTAN POTASSIUM. [Concomitant]
     Active Substance: LOSARTAN POTASSIUM
  5. FLUCONAZOLE. [Concomitant]
     Active Substance: FLUCONAZOLE
  6. DOXYCYCLINE MONOHYDRATE [Concomitant]
     Active Substance: DOXYCYCLINE
  7. SINEMET [Concomitant]
     Active Substance: CARBIDOPA\LEVODOPA
  8. CALCIUM [Concomitant]
     Active Substance: CALCIUM
  9. CARBIDOPA-LEVODOPA [Concomitant]
     Active Substance: CARBIDOPA\LEVODOPA
  10. ACIDOPHILUS PROBIOTIC [Concomitant]
  11. APOKYN [Suspect]
     Active Substance: APOMORPHINE HYDROCHLORIDE
     Route: 058
  12. GABAPENTIN. [Concomitant]
     Active Substance: GABAPENTIN
  13. OMEPRAZOLE. [Concomitant]
     Active Substance: OMEPRAZOLE
  14. DICLOFENAC POTASSIUM. [Concomitant]
     Active Substance: DICLOFENAC POTASSIUM
  15. GAS-X [Concomitant]
     Active Substance: DIMETHICONE
  16. MULTIVITAMINS [Concomitant]
     Active Substance: VITAMINS
  17. SIMETHICONE (DIMETHICONE) [Concomitant]
     Active Substance: DIMETHICONE
  18. APOKYN [Suspect]
     Active Substance: APOMORPHINE HYDROCHLORIDE
     Route: 058
  19. AZILECT [Concomitant]
     Active Substance: RASAGILINE MESYLATE
  20. VITAMIN D3 [Concomitant]
     Active Substance: CHOLECALCIFEROL
  21. APOKYN [Suspect]
     Active Substance: APOMORPHINE HYDROCHLORIDE
     Indication: PARKINSON^S DISEASE
     Route: 058
     Dates: start: 20190204
  22. NON-ASPIRIN [Concomitant]
     Active Substance: ACETAMINOPHEN
  23. TYLENOL [Concomitant]
     Active Substance: ACETAMINOPHEN
  24. SULFAMETHOXAZOLE-TRIME [Concomitant]
  25. ATENOLOL-CHLORTHALIDONE [Concomitant]
     Active Substance: ATENOLOL\CHLORTHALIDONE
  26. APOKYN [Suspect]
     Active Substance: APOMORPHINE HYDROCHLORIDE
     Route: 058
  27. ATENO-CHLOR 50 [Concomitant]
  28. SIMVASTATIN. [Concomitant]
     Active Substance: SIMVASTATIN
  29. TRIMETHOBENZAMIDE HYDROCHLORIDE. [Concomitant]
     Active Substance: TRIMETHOBENZAMIDE HYDROCHLORIDE
  30. MELOXICAM. [Concomitant]
     Active Substance: MELOXICAM
     Indication: PAIN

REACTIONS (6)
  - Feeling abnormal [Unknown]
  - Diplopia [Recovered/Resolved]
  - Fatigue [Recovering/Resolving]
  - Upper-airway cough syndrome [Recovered/Resolved]
  - Somnolence [Recovering/Resolving]
  - Rhinorrhoea [Recovered/Resolved]

NARRATIVE: CASE EVENT DATE: 20190204
